FAERS Safety Report 17930560 (Version 2)
Quarter: 2020Q2

REPORT INFORMATION
  Report Type: Spontaneous
  Country: CZ (occurrence: CZ)
  Receive Date: 20200623
  Receipt Date: 20200625
  Transmission Date: 20200714
  Serious: Yes (Hospitalization)
  Sender: FDA-Public Use
  Company Number: NVSC2020CZ174877

PATIENT
  Sex: Female

DRUGS (2)
  1. GENTAMICIN. [Suspect]
     Active Substance: GENTAMICIN
     Indication: ANTIBIOTIC THERAPY
     Dosage: UNK
     Route: 065
  2. ABAKTAL [PEFLOXACIN MESILATE]? [Suspect]
     Active Substance: PEFLOXACIN MESYLATE
     Indication: ANTIBIOTIC THERAPY
     Dosage: UNK
     Route: 065

REACTIONS (4)
  - Escherichia infection [Not Recovered/Not Resolved]
  - Dehiscence [Recovering/Resolving]
  - Skin discolouration [Not Recovered/Not Resolved]
  - Inflammation [Unknown]
